FAERS Safety Report 9270026 (Version 4)
Quarter: 2013Q4

REPORT INFORMATION
  Report Type: Spontaneous
  Country: FR (occurrence: None)
  Receive Date: 20130502
  Receipt Date: 20131015
  Transmission Date: 20140711
  Serious: Yes (Death, Hospitalization, Other)
  Sender: FDA-Public Use
  Company Number: 2013FR001505

PATIENT
  Age: 71 Year
  Sex: Female
  Weight: 55 kg

DRUGS (5)
  1. PONATINIB (AP24534) TABLET [Suspect]
     Indication: ACUTE LYMPHOCYTIC LEUKAEMIA
     Route: 048
     Dates: start: 20130315, end: 20130321
  2. LOXEN (NICARDIPINE HYDROCHLORIDE) SLOW RELEASE [Concomitant]
  3. TRIATEC (RAMIPRIL) [Concomitant]
  4. CYMBALTA (DULOXETINE HYDROCHLORIDE) [Concomitant]
  5. LANTUS (INSULIN GLARGINE [Concomitant]

REACTIONS (12)
  - Pancreatitis necrotising [None]
  - Headache [None]
  - Hypertension [None]
  - Joint hyperextension [None]
  - Cardiac arrest [None]
  - Subdural haemorrhage [None]
  - Constipation [None]
  - Alanine aminotransferase increased [None]
  - General physical health deterioration [None]
  - Cardio-respiratory arrest [None]
  - Ventricular fibrillation [None]
  - Pancreatitis haemorrhagic [None]
